FAERS Safety Report 13852290 (Version 3)
Quarter: 2017Q3

REPORT INFORMATION
  Report Type: Spontaneous
  Country: US (occurrence: US)
  Receive Date: 20170810
  Receipt Date: 20170823
  Transmission Date: 20171127
  Serious: No
  Sender: FDA-Public Use
  Company Number: US-PFIZER INC-2017346613

PATIENT
  Age: 70 Year
  Sex: Female
  Weight: 58.5 kg

DRUGS (8)
  1. LYRICA [Suspect]
     Active Substance: PREGABALIN
     Indication: NEUROPATHY PERIPHERAL
  2. LYRICA [Suspect]
     Active Substance: PREGABALIN
     Indication: HERPES ZOSTER
  3. TRAMADOL. [Concomitant]
     Active Substance: TRAMADOL
     Indication: PAIN
  4. LYRICA [Suspect]
     Active Substance: PREGABALIN
     Indication: POST HERPETIC NEURALGIA
     Dosage: 50 MG, 3X/DAY
     Route: 048
     Dates: start: 20170721, end: 20170804
  5. TRAMADOL. [Concomitant]
     Active Substance: TRAMADOL
     Indication: DISCOMFORT
     Dosage: 50 MG, AS NEEDED; (50MG TABLETS EVERY 6 HOURS AS NEEDED BY MOUTH)
     Route: 048
     Dates: start: 201705
  6. AMLODIPINE/BENAZEPRIL [Concomitant]
     Active Substance: AMLODIPINE BESYLATE\BENAZEPRIL HYDROCHLORIDE
     Indication: HYPERTENSION
     Dosage: 5/10 MG TIME RELEASED CAPSULE
  7. TRAMADOL. [Concomitant]
     Active Substance: TRAMADOL
     Indication: MUSCULOSKELETAL PAIN
  8. LYRICA [Suspect]
     Active Substance: PREGABALIN
     Indication: PAIN

REACTIONS (1)
  - Drug effect delayed [Recovered/Resolved]
